FAERS Safety Report 19151892 (Version 11)
Quarter: 2022Q1

REPORT INFORMATION
  Report Type: Other
  Country: GB (occurrence: GB)
  Receive Date: 20210419
  Receipt Date: 20220307
  Transmission Date: 20220423
  Serious: Yes (Hospitalization, Disabling, Other)
  Sender: FDA-Public Use
  Company Number: GB-MACLEODS PHARMA UK LTD-MAC2021030820

PATIENT
  Age: 24 Year
  Sex: Male

DRUGS (16)
  1. ESCITALOPRAM [Suspect]
     Active Substance: ESCITALOPRAM OXALATE
     Indication: Antidepressant therapy
     Dosage: 10 MILLIGRAM, QD
     Route: 065
     Dates: end: 201509
  2. ESCITALOPRAM [Suspect]
     Active Substance: ESCITALOPRAM OXALATE
     Dosage: UNK
     Route: 065
  3. CITALOPRAM [Interacting]
     Active Substance: CITALOPRAM HYDROBROMIDE
     Indication: Ill-defined disorder
     Dosage: 10 MILLIGRAM INITIALLY
     Route: 048
     Dates: start: 201507
  4. MIRTAZAPINE [Suspect]
     Active Substance: MIRTAZAPINE
     Indication: Antidepressant therapy
     Dosage: 7.5 MILLIGRAM, QD, UPTITRATED TO 45MG DAILY THEN REDUCED DOWN TO STOP
     Route: 048
     Dates: start: 2014, end: 2015
  5. MIRTAZAPINE [Suspect]
     Active Substance: MIRTAZAPINE
     Dosage: 45 MILLIGRAM, QD, (7.5MG-UPTITRATED TO 45MG DAILY THEN REDUCED DOWN, ORAL SOULTION
     Route: 048
     Dates: start: 2014, end: 2015
  6. RISPERDAL [Suspect]
     Active Substance: RISPERIDONE
     Indication: Ill-defined disorder
     Dosage: UNK
     Route: 048
  7. RISPERDAL [Suspect]
     Active Substance: RISPERIDONE
     Dosage: UNK
     Route: 065
  8. SERTRALINE [Suspect]
     Active Substance: SERTRALINE HYDROCHLORIDE
     Indication: Antidepressant therapy
     Dosage: 50 MILLIGRAM INITALLY THEN 100MG
     Route: 048
     Dates: start: 2014
  9. SERTRALINE [Suspect]
     Active Substance: SERTRALINE HYDROCHLORIDE
     Dosage: 100 MILLIGRAM
     Route: 048
     Dates: start: 2014
  10. SERTRALINE [Suspect]
     Active Substance: SERTRALINE HYDROCHLORIDE
     Dosage: 100 MILLIGRAM, TEVA UK SERTRALINE HYDROCHLORIDE
     Route: 048
     Dates: start: 2014
  11. TEMAZEPAM [Suspect]
     Active Substance: TEMAZEPAM
     Indication: Poor quality sleep
     Dosage: 10 MILLIGRAM, QD
     Route: 048
  12. TRAZODONE HYDROCHLORIDE [Suspect]
     Active Substance: TRAZODONE HYDROCHLORIDE
     Indication: Antidepressant therapy
     Dosage: 50 MILLIGRAM, 50MG INITAILLY INCREASED TO 100MG DAILY THEN REDUCED TO 50MG
     Route: 048
     Dates: start: 2015, end: 201507
  13. TRAZODONE HYDROCHLORIDE [Suspect]
     Active Substance: TRAZODONE HYDROCHLORIDE
     Indication: Poor quality sleep
     Dosage: 100 MILLIGRAM, QD (INCREASED TO 100 MG DAILY)
     Route: 048
     Dates: start: 2015, end: 201507
  14. TRAZODONE HYDROCHLORIDE [Suspect]
     Active Substance: TRAZODONE HYDROCHLORIDE
     Dosage: 50 MILLIGRAM, 50MG INITAILLY INCREASED TO 100MG DAILY THEN REDUCED TO 50MG
     Route: 048
  15. TRAZODONE HYDROCHLORIDE [Suspect]
     Active Substance: TRAZODONE HYDROCHLORIDE
     Dosage: 100 MILLIGRAM
     Route: 048
  16. CIPRALEX [Suspect]
     Active Substance: ESCITALOPRAM OXALATE
     Indication: Antidepressant therapy
     Dosage: 10 MILLIGRAM, QD
     Route: 048
     Dates: start: 201507, end: 201509

REACTIONS (26)
  - Homicidal ideation [Unknown]
  - Loss of libido [Unknown]
  - Sedation [Unknown]
  - Intrusive thoughts [Unknown]
  - Withdrawal syndrome [Unknown]
  - Anger [Unknown]
  - Suicide attempt [Unknown]
  - Irritability [Unknown]
  - Mood swings [Unknown]
  - Paranoia [Unknown]
  - Psychotic disorder [Unknown]
  - Tachyphrenia [Unknown]
  - Feeling abnormal [Unknown]
  - Somnolence [Unknown]
  - Agitation [Unknown]
  - Suicidal ideation [Unknown]
  - Insomnia [Unknown]
  - Confusional state [Unknown]
  - Hallucination, visual [Unknown]
  - Hallucination, auditory [Unknown]
  - Amnesia [Unknown]
  - Aggression [Unknown]
  - Nausea [Unknown]
  - Headache [Unknown]
  - Product use in unapproved indication [Unknown]
  - Off label use [Unknown]
